FAERS Safety Report 16813139 (Version 1)
Quarter: 2019Q3

REPORT INFORMATION
  Report Type: Other
  Country: US (occurrence: US)
  Receive Date: 20190916
  Receipt Date: 20190916
  Transmission Date: 20191005
  Serious: No
  Sender: FDA-Public Use
  Company Number: US-LEADIANT BIOSCIENCES INC-2019STPI000220

PATIENT
  Age: 57 Year
  Sex: Female

DRUGS (7)
  1. GLEOSTINE [Concomitant]
     Active Substance: LOMUSTINE
  2. VITAMIN B12 [VITAMIN B12 NOS] [Concomitant]
     Active Substance: CYANOCOBALAMIN
  3. KEPPRA [Concomitant]
     Active Substance: LEVETIRACETAM
  4. PIMECROLIMUS. [Concomitant]
     Active Substance: PIMECROLIMUS
  5. ONDANSETRON [Concomitant]
     Active Substance: ONDANSETRON
  6. VITAMIN D3 [Concomitant]
     Active Substance: CHOLECALCIFEROL
  7. MATULANE [Suspect]
     Active Substance: PROCARBAZINE HYDROCHLORIDE
     Indication: BRAIN NEOPLASM MALIGNANT
     Dosage: 50 MILLIGRAM, QD FOR 10 DAYS EVERY 28 DAYS
     Route: 048
     Dates: start: 20180915

REACTIONS (2)
  - Abdominal discomfort [Not Recovered/Not Resolved]
  - Abdominal pain [Not Recovered/Not Resolved]

NARRATIVE: CASE EVENT DATE: 20190401
